FAERS Safety Report 16021229 (Version 1)
Quarter: 2019Q2

REPORT INFORMATION
  Report Type: Spontaneous
  Country: US (occurrence: US)
  Receive Date: 20190228
  Receipt Date: 20190228
  Transmission Date: 20190711
  Serious: No
  Sender: FDA-Public Use
  Company Number: None

PATIENT
  Age: 26 Year
  Sex: Female
  Weight: 66.6 kg

DRUGS (1)
  1. LEVONORGESTREL. [Suspect]
     Active Substance: LEVONORGESTREL
     Indication: POST COITAL CONTRACEPTION
     Dosage: ?          QUANTITY:1 TABLET(S);?
     Route: 048
     Dates: start: 20190219, end: 20190219

REACTIONS (7)
  - Abdominal pain lower [None]
  - Vulvovaginal dryness [None]
  - Eye irritation [None]
  - Headache [None]
  - Mouth haemorrhage [None]
  - Vaginal haemorrhage [None]
  - Epistaxis [None]

NARRATIVE: CASE EVENT DATE: 20190219
